FAERS Safety Report 8019297 (Version 2)
Quarter: 2013Q2

REPORT INFORMATION
  Report Type: Spontaneous
  Country: US (occurrence: None)
  Receive Date: 20110525
  Receipt Date: 20130225
  Transmission Date: 20140414
  Serious: No
  Sender: FDA-Public Use
  Company Number: 326247

PATIENT
  Age: 75 Year
  Sex: Male
  Weight: 80.3 kg

DRUGS (6)
  1. VICTOZA [Suspect]
     Indication: TYPE 2 DIABETES MELLITUS
     Dosage: 1.2 MG, QD, SUBCUTANEOUS
     Route: 058
     Dates: start: 20110302, end: 20110315
  2. ACTOS (PIOGLITAZONE HYDROCHLORIDE) [Concomitant]
  3. GLIMEPIRIDE (GLIMEPIRIDE) [Concomitant]
  4. BENAZEPRIL (BENAZEPRIL) [Concomitant]
  5. BONIVA (IBANDRONATE SODIUM) [Concomitant]
  6. DIAZEPAM (DIAZEPAM) [Concomitant]

REACTIONS (9)
  - DIZZINESS [None]
  - DIARRHOEA [None]
  - HEADACHE [None]
  - BLOOD GLUCOSE DECREASED [None]
  - ASTHENIA [None]
  - Ataxia [None]
  - VISION BLURRED [None]
  - ABDOMINAL PAIN [None]
  - NAUSEA [None]
